FAERS Safety Report 5916766-5 (Version None)
Quarter: 2008Q4

REPORT INFORMATION
  Report Type: 
  Country: None (occurrence: None)
  Receive Date: 20081013
  Receipt Date: 20081001
  Transmission Date: 20090506
  Serious: Yes (Death, Hospitalization)
  Sender: FDA-Public Use
  Company Number: JP-PFIZER INC-2008079539

PATIENT
  Age: 39 Year
  Sex: Male
  Weight: 59 kg

DRUGS (9)
  1. VFEND [Suspect]
     Dosage: DAILY DOSE:5.9MG/KG
     Route: 042
     Dates: start: 20080222, end: 20080222
  2. VFEND [Suspect]
     Route: 042
     Dates: start: 20080223, end: 20080227
  3. SANDIMMUNE [Concomitant]
     Route: 042
  4. TIENAM [Concomitant]
     Route: 042
     Dates: start: 20080222, end: 20080227
  5. BACTRIM [Concomitant]
     Route: 048
     Dates: end: 20080227
  6. FRESH FROZEN PLASMA [Concomitant]
     Route: 042
     Dates: start: 20080222
  7. ALL OTHER THERAPEUTIC PRODUCTS [Concomitant]
     Route: 042
     Dates: start: 20080222
  8. ADONA [Concomitant]
     Route: 042
     Dates: start: 20080222, end: 20080224
  9. FENTANYL [Concomitant]
     Route: 042
     Dates: end: 20080225

REACTIONS (2)
  - RENAL IMPAIRMENT [None]
  - SYSTEMIC INFLAMMATORY RESPONSE SYNDROME [None]
